FAERS Safety Report 15317661 (Version 2)
Quarter: 2018Q3

REPORT INFORMATION
  Report Type: Spontaneous
  Country: US (occurrence: US)
  Receive Date: 20180824
  Receipt Date: 20180914
  Transmission Date: 20181010
  Serious: No
  Sender: FDA-Public Use
  Company Number: US-JNJFOC-20180814428

PATIENT
  Age: 28 Year
  Sex: Male
  Weight: 70.31 kg

DRUGS (13)
  1. INVEGA [Suspect]
     Active Substance: PALIPERIDONE
     Indication: PARANOIA
     Route: 048
     Dates: start: 20180328
  2. KLONOPIN [Concomitant]
     Active Substance: CLONAZEPAM
     Indication: DEPRESSION
     Route: 065
     Dates: start: 20180724
  3. KLONOPIN [Concomitant]
     Active Substance: CLONAZEPAM
     Indication: CRANIOCEREBRAL INJURY
     Route: 065
     Dates: start: 20180724
  4. DEPAKOTE [Concomitant]
     Active Substance: DIVALPROEX SODIUM
     Indication: CRANIOCEREBRAL INJURY
     Route: 065
     Dates: start: 20180328
  5. PROZAC [Concomitant]
     Active Substance: FLUOXETINE HYDROCHLORIDE
     Indication: CRANIOCEREBRAL INJURY
     Route: 065
     Dates: start: 20180328, end: 20180612
  6. CYMBALTA [Concomitant]
     Active Substance: DULOXETINE HYDROCHLORIDE
     Indication: DEPRESSION
     Route: 065
     Dates: start: 20180724
  7. PRAZOSIN. [Concomitant]
     Active Substance: PRAZOSIN
     Indication: CRANIOCEREBRAL INJURY
     Route: 065
     Dates: start: 20180328
  8. SEROQUEL [Concomitant]
     Active Substance: QUETIAPINE FUMARATE
     Indication: CRANIOCEREBRAL INJURY
     Route: 065
     Dates: start: 20180328
  9. CYMBALTA [Concomitant]
     Active Substance: DULOXETINE HYDROCHLORIDE
     Indication: CRANIOCEREBRAL INJURY
     Route: 065
     Dates: start: 20180724
  10. SEROQUEL [Concomitant]
     Active Substance: QUETIAPINE FUMARATE
     Indication: SLEEP DISORDER
     Route: 065
     Dates: start: 20180328
  11. ATIVAN [Concomitant]
     Active Substance: LORAZEPAM
     Indication: CRANIOCEREBRAL INJURY
     Route: 065
     Dates: start: 20180328, end: 20180612
  12. COGENTIN [Concomitant]
     Active Substance: BENZTROPINE MESYLATE
     Indication: CRANIOCEREBRAL INJURY
     Route: 065
     Dates: start: 20180328
  13. INVEGA [Suspect]
     Active Substance: PALIPERIDONE
     Indication: ANXIETY
     Route: 048
     Dates: start: 20180328

REACTIONS (1)
  - Memory impairment [Recovering/Resolving]

NARRATIVE: CASE EVENT DATE: 201806
